FAERS Safety Report 4345326-5 (Version None)
Quarter: 2004Q2

REPORT INFORMATION
  Report Type: 
  Country: None (occurrence: None)
  Receive Date: 20040422
  Receipt Date: 20040422
  Transmission Date: 20050107
  Serious: Yes (Hospitalization)
  Sender: FDA-Public Use
  Company Number: None

PATIENT
  Age: 67 Year
  Sex: Female
  Weight: 90 kg

DRUGS (3)
  1. DEMEROL [Suspect]
     Indication: FRACTURE
     Dosage: 25MG ONCE INTRAVENOUS
     Route: 042
     Dates: start: 20040319, end: 20040319
  2. DEMEROL [Suspect]
     Indication: PAIN
     Dosage: 25MG ONCE INTRAVENOUS
     Route: 042
     Dates: start: 20040319, end: 20040319
  3. PHENERGAN [Suspect]
     Indication: PROPHYLAXIS OF NAUSEA AND VOMITING
     Dosage: 25MG ONCE INTRAVENOUS
     Route: 042
     Dates: start: 20040319, end: 20040319

REACTIONS (1)
  - ACUTE RESPIRATORY DISTRESS SYNDROME [None]
